FAERS Safety Report 14924354 (Version 2)
Quarter: 2018Q2

REPORT INFORMATION
  Report Type: Report from Study
  Country: US (occurrence: US)
  Receive Date: 20180522
  Receipt Date: 20180530
  Transmission Date: 20180711
  Serious: Yes (Hospitalization, Other)
  Sender: FDA-Public Use
  Company Number: US-GILEAD-2018-0321112

PATIENT
  Age: 75 Year
  Sex: Female

DRUGS (21)
  1. AMBRISENTAN [Suspect]
     Active Substance: AMBRISENTAN
     Indication: PULMONARY ARTERIAL HYPERTENSION
     Dosage: 10 MG, QD
     Route: 048
  2. OXYGEN W/SODIUM CHLORIDE [Concomitant]
  3. PRIMIDONE. [Concomitant]
     Active Substance: PRIMIDONE
  4. PROAIR HFA [Concomitant]
     Active Substance: ALBUTEROL SULFATE
  5. AMBRISENTAN [Suspect]
     Active Substance: AMBRISENTAN
     Indication: SCLERODERMA
  6. FUROSEMIDE. [Concomitant]
     Active Substance: FUROSEMIDE
  7. HYDROCODONE BITARTRATE AND ACETAMINOPHEN [Concomitant]
     Active Substance: ACETAMINOPHEN\HYDROCODONE BITARTRATE
  8. SODIUM THIOSULFATE ANHYDROUS [Concomitant]
  9. LEVOTHYROXINE. [Concomitant]
     Active Substance: LEVOTHYROXINE
  10. SYSTANE (HYPROMELLOSE 2910 (4000 MPA.S)) [Concomitant]
     Active Substance: HYPROMELLOSE 2910 (4000 MPA.S)
  11. MICARDIS [Suspect]
     Active Substance: TELMISARTAN
     Indication: PRODUCT USED FOR UNKNOWN INDICATION
     Dosage: 40 MG, QD
     Route: 048
  12. ASPIRIN                            /00002701/ [Concomitant]
     Active Substance: ASPIRIN
  13. CHLORDIAZEPOXIDE HCL/CLIDINIUM BROMIDE [Concomitant]
  14. MYCOPHENOLATE [Concomitant]
     Active Substance: MYCOPHENOLIC ACID
  15. AMIODARONE [Concomitant]
     Active Substance: AMIODARONE
  16. ELIQUIS [Concomitant]
     Active Substance: APIXABAN
  17. FERROUS SULFATE ANHYDROUS. [Concomitant]
     Active Substance: FERROUS SULFATE ANHYDROUS
  18. VICODIN [Concomitant]
     Active Substance: ACETAMINOPHEN\HYDROCODONE BITARTRATE
  19. MIACALCIN [Concomitant]
     Active Substance: CALCITONIN SALMON
  20. PREDNISONE. [Concomitant]
     Active Substance: PREDNISONE
  21. PYRIDOSTIGMINE BROMIDE. [Concomitant]
     Active Substance: PYRIDOSTIGMINE BROMIDE

REACTIONS (5)
  - Arthritis [Not Recovered/Not Resolved]
  - Hypotension [Unknown]
  - Hypoacusis [Not Recovered/Not Resolved]
  - Compression fracture [Recovering/Resolving]
  - Product use issue [Unknown]

NARRATIVE: CASE EVENT DATE: 20180201
